FAERS Safety Report 17807492 (Version 1)
Quarter: 2020Q2

REPORT INFORMATION
  Report Type: Spontaneous
  Country: US (occurrence: US)
  Receive Date: 20200520
  Receipt Date: 20200520
  Transmission Date: 20200714
  Serious: No
  Sender: FDA-Public Use
  Company Number: None

PATIENT
  Age: 18 Year
  Sex: Female
  Weight: 70.16 kg

DRUGS (1)
  1. MEDROXYPROGESTERONE ACETATE. [Suspect]
     Active Substance: MEDROXYPROGESTERONE ACETATE
     Indication: CONTRACEPTION
     Dosage: ?          OTHER FREQUENCY:EVERY 3 MONTHS;?
     Route: 030

REACTIONS (4)
  - Procedural complication [None]
  - Incorrect dose administered by device [None]
  - Needle issue [None]
  - Liquid product physical issue [None]

NARRATIVE: CASE EVENT DATE: 20200513
